FAERS Safety Report 5776166-8 (Version None)
Quarter: 2008Q2

REPORT INFORMATION
  Report Type: 
  Country: None (occurrence: None)
  Receive Date: 20080613
  Receipt Date: 20080602
  Transmission Date: 20081010
  Serious: Yes (Hospitalization)
  Sender: FDA-Public Use
  Company Number: 1-16234441

PATIENT
  Age: 61 Year
  Sex: Male

DRUGS (4)
  1. CARBAMAZEPINE [Suspect]
     Indication: NEURALGIA
     Dosage: ORAL
     Route: 048
  2. LISINOPRIL [Concomitant]
  3. OXYBUTYNIN CHLORIDE [Concomitant]
  4. BACLOFEN [Concomitant]

REACTIONS (4)
  - DRUG RASH WITH EOSINOPHILIA AND SYSTEMIC SYMPTOMS [None]
  - DYSPHAGIA [None]
  - EOSINOPHILIC OESOPHAGITIS [None]
  - PYREXIA [None]
